FAERS Safety Report 16993355 (Version 1)
Quarter: 2019Q4

REPORT INFORMATION
  Report Type: Spontaneous
  Country: ES (occurrence: ES)
  Receive Date: 20191105
  Receipt Date: 20191105
  Transmission Date: 20200122
  Serious: Yes (Other)
  Sender: FDA-Public Use
  Company Number: ES-MYLANLABS-2019M1105585

PATIENT
  Age: 76 Year
  Sex: Female
  Weight: 50 kg

DRUGS (4)
  1. MEMANTINE. [Suspect]
     Active Substance: MEMANTINE
     Indication: COGNITIVE DISORDER
     Dosage: 1 DOSAGE FORM, QD
     Route: 048
     Dates: start: 20190526, end: 20190711
  2. MEMANTINE. [Suspect]
     Active Substance: MEMANTINE
     Indication: COGNITIVE DISORDER
     Dosage: 1 DOSAGE FORM, QD
     Route: 048
     Dates: start: 20190526, end: 20190711
  3. MEMANTINE. [Suspect]
     Active Substance: MEMANTINE
     Indication: COGNITIVE DISORDER
     Dosage: 1 DOSAGE FORM, QD
     Route: 048
     Dates: start: 20190526, end: 20190711
  4. MEMANTINE. [Suspect]
     Active Substance: MEMANTINE
     Indication: COGNITIVE DISORDER
     Dosage: 1 DOSAGE FORM, QD
     Route: 048
     Dates: start: 20190526, end: 20190711

REACTIONS (3)
  - Bradycardia [Unknown]
  - Dizziness [Unknown]
  - Blood pressure systolic increased [Unknown]

NARRATIVE: CASE EVENT DATE: 2019
